FAERS Safety Report 5950303-4 (Version None)
Quarter: 2008Q4

REPORT INFORMATION
  Report Type: 
  Country: None (occurrence: None)
  Receive Date: 20081022
  Receipt Date: 20080709
  Transmission Date: 20090506
  Serious: No
  Sender: FDA-Public Use
  Company Number: ALL1-2008-01972

PATIENT
  Age: 15 Year
  Sex: Female

DRUGS (2)
  1. VYVANSE [Suspect]
     Dosage: 30 MG, 1X/DAY:QD, ORAL
     Route: 048
     Dates: start: 20080703
  2. RISPERDAL [Concomitant]

REACTIONS (3)
  - OFF LABEL USE [None]
  - SENSATION OF HEAVINESS [None]
  - SENSORY LOSS [None]
